FAERS Safety Report 5859564-3 (Version None)
Quarter: 2008Q3

REPORT INFORMATION
  Report Type: 
  Country: None (occurrence: None)
  Receive Date: 20080827
  Receipt Date: 20080821
  Transmission Date: 20090109
  Serious: Yes (Hospitalization)
  Sender: FDA-Public Use
  Company Number: A0744756A

PATIENT
  Age: 56 Year
  Sex: Female
  Weight: 102.7 kg

DRUGS (5)
  1. AVANDIA [Suspect]
  2. ACTOS [Concomitant]
     Dates: start: 20030101
  3. METFORMIN HCL [Concomitant]
     Dates: start: 20050101
  4. ATENOLOL [Concomitant]
     Dates: start: 20050708, end: 20051123
  5. PLAVIX [Concomitant]

REACTIONS (1)
  - MYOCARDIAL INFARCTION [None]
